FAERS Safety Report 9989902 (Version 1)
Quarter: 2014Q1

REPORT INFORMATION
  Report Type: Report from Study
  Country: US (occurrence: US)
  Receive Date: 20140310
  Receipt Date: 20140310
  Transmission Date: 20141002
  Serious: No
  Sender: FDA-Public Use
  Company Number: US-ABBVIE-13P-163-1130238-00

PATIENT
  Age: 49 Year
  Sex: Female

DRUGS (8)
  1. HUMIRA [Suspect]
     Indication: PSORIATIC ARTHROPATHY
  2. ADDERALL [Concomitant]
     Indication: ATTENTION DEFICIT/HYPERACTIVITY DISORDER
     Dosage: 40 MG XR IN AM AND 10 MG IR AT 5 PM
  3. FOLIC ACID [Concomitant]
     Indication: PRODUCT USED FOR UNKNOWN INDICATION
  4. METHOTREXATE [Concomitant]
     Indication: PRODUCT USED FOR UNKNOWN INDICATION
  5. LEVOXYL [Concomitant]
     Indication: HYPOTHYROIDISM
     Dosage: 175 MCG DAILY
  6. KLONOPIN [Concomitant]
     Indication: ANXIETY
     Dosage: 4 MG DAILY
  7. LEXAPRO [Concomitant]
     Indication: ANXIETY
     Dosage: 20 MG DAILY
  8. UNKNOWN VITAMIN SUPPLEMENTS [Concomitant]
     Indication: PRODUCT USED FOR UNKNOWN INDICATION

REACTIONS (2)
  - Injection site pruritus [Not Recovered/Not Resolved]
  - Hand fracture [Unknown]
